FAERS Safety Report 8166493-1 (Version None)
Quarter: 2012Q1

REPORT INFORMATION
  Report Type: 
  Country: None (occurrence: None)
  Receive Date: 20120227
  Receipt Date: 20111027
  Transmission Date: 20120608
  Serious: No
  Sender: FDA-Public Use
  Company Number: US-MYLANLABS-2011S1019497

PATIENT
  Age: 46 Year
  Sex: Female
  Weight: 82.1 kg

DRUGS (1)
  1. AMNESTEEM [Suspect]
     Indication: ACNE
     Route: 048
     Dates: start: 20110719, end: 20110801

REACTIONS (4)
  - FATIGUE [None]
  - ARTHRALGIA [None]
  - MUSCLE SPASMS [None]
  - ADVERSE EVENT [None]
